FAERS Safety Report 5558413-0 (Version None)
Quarter: 2007Q4

REPORT INFORMATION
  Report Type: 
  Country: None (occurrence: None)
  Receive Date: 20071214
  Receipt Date: 20070917
  Transmission Date: 20080405
  Serious: No
  Sender: FDA-Public Use
  Company Number: US-ABBOTT-07P-163-0371865-00

PATIENT
  Sex: Female
  Weight: 45.854 kg

DRUGS (5)
  1. HUMIRA [Suspect]
     Indication: CROHN'S DISEASE
     Route: 058
     Dates: start: 20070616, end: 20070616
  2. HUMIRA [Suspect]
     Route: 058
     Dates: start: 20070602, end: 20070602
  3. HUMIRA [Suspect]
     Route: 058
     Dates: start: 20070603, end: 20070603
  4. HUMIRA [Suspect]
     Route: 058
     Dates: start: 20070602
  5. METHOTREXATE [Concomitant]
     Indication: CROHN'S DISEASE
     Route: 048
     Dates: start: 20070903

REACTIONS (5)
  - ACCIDENTAL EXPOSURE [None]
  - INJECTION SITE ERYTHEMA [None]
  - INJECTION SITE NODULE [None]
  - INJECTION SITE PRURITUS [None]
  - INJECTION SITE VESICLES [None]
